FAERS Safety Report 9964636 (Version 2)
Quarter: 2014Q2

REPORT INFORMATION
  Report Type: Spontaneous
  Country: US (occurrence: US)
  Receive Date: 20140305
  Receipt Date: 20140606
  Transmission Date: 20141212
  Serious: Yes (Hospitalization, Other)
  Sender: FDA-Public Use
  Company Number: US-AMGEN-USASP2013088533

PATIENT
  Age: 61 Year
  Sex: Female

DRUGS (1)
  1. ENBREL [Suspect]
     Indication: PSORIATIC ARTHROPATHY
     Dosage: 50 MG, QWK
     Route: 065
     Dates: start: 20131211, end: 201312

REACTIONS (11)
  - Abdominal pain [Recovered/Resolved]
  - Accident [Unknown]
  - Loss of consciousness [Unknown]
  - Tremor [Not Recovered/Not Resolved]
  - Dyskinesia [Not Recovered/Not Resolved]
  - Muscle spasms [Not Recovered/Not Resolved]
  - Flashback [Not Recovered/Not Resolved]
  - Insomnia [Unknown]
  - Mental disorder [Unknown]
  - Confusional state [Unknown]
  - Somnolence [Unknown]
